FAERS Safety Report 11419373 (Version 1)
Quarter: 2015Q3

REPORT INFORMATION
  Report Type: Spontaneous
  Country: US (occurrence: None)
  Receive Date: 20150824
  Receipt Date: 20150824
  Transmission Date: 20151125
  Serious: Yes (Other)
  Sender: FDA-Public Use
  Company Number: None

PATIENT
  Age: 38 Year
  Sex: Female
  Weight: 59.88 kg

DRUGS (2)
  1. CIPRO [Suspect]
     Active Substance: CIPROFLOXACIN HYDROCHLORIDE
     Indication: INFECTION
     Dosage: 5 PILLS
     Dates: start: 20140521, end: 20140526
  2. CIPRO [Suspect]
     Active Substance: CIPROFLOXACIN HYDROCHLORIDE
     Indication: DYSPEPSIA
     Dosage: 5 PILLS
     Dates: start: 20140521, end: 20140526

REACTIONS (12)
  - Amnesia [None]
  - Headache [None]
  - Eye pain [None]
  - Executive dysfunction [None]
  - Nervous system disorder [None]
  - Immune system disorder [None]
  - Irritability [None]
  - Visual acuity reduced [None]
  - Alopecia [None]
  - Dyspepsia [None]
  - Ocular hyperaemia [None]
  - Insomnia [None]

NARRATIVE: CASE EVENT DATE: 20020521
